FAERS Safety Report 7420178-5 (Version None)
Quarter: 2011Q2

REPORT INFORMATION
  Report Type: 
  Country: None (occurrence: None)
  Receive Date: 20110413
  Receipt Date: 20110413
  Transmission Date: 20111010
  Serious: Yes (Other)
  Sender: FDA-Public Use
  Company Number: None

PATIENT
  Age: 71 Year
  Sex: Female
  Weight: 108.8633 kg

DRUGS (1)
  1. ACTOS [Suspect]
     Indication: DIABETES MELLITUS
     Dosage: 30MG 1 A DAY
     Dates: start: 20101204, end: 20101216

REACTIONS (7)
  - HEADACHE [None]
  - NASOPHARYNGITIS [None]
  - OEDEMA PERIPHERAL [None]
  - COUGH [None]
  - MUSCLE SPASMS [None]
  - FLATULENCE [None]
  - ASTHENIA [None]
